FAERS Safety Report 16796665 (Version 2)
Quarter: 2019Q4

REPORT INFORMATION
  Report Type: Spontaneous
  Country: US (occurrence: US)
  Receive Date: 20190911
  Receipt Date: 20191004
  Transmission Date: 20200122
  Serious: Yes (Other)
  Sender: FDA-Public Use
  Company Number: US-009507513-1909USA001676

PATIENT
  Sex: Female
  Weight: 97.51 kg

DRUGS (2)
  1. KEYTRUDA [Suspect]
     Active Substance: PEMBROLIZUMAB
     Indication: CERVIX CANCER METASTATIC
     Dosage: UNK
     Route: 042
     Dates: start: 201809
  2. LYRICA [Concomitant]
     Active Substance: PREGABALIN
     Indication: NEURALGIA
     Dosage: 150 MILLIGRAM, BID (1 IN THE MORNING, 1 AT NIGHT)
     Route: 048
     Dates: start: 2010

REACTIONS (3)
  - Therapeutic product effect incomplete [Unknown]
  - Malignant neoplasm progression [Recovering/Resolving]
  - Cancer pain [Unknown]
